FAERS Safety Report 6991538-1 (Version None)
Quarter: 2010Q3

REPORT INFORMATION
  Report Type: 
  Country: None (occurrence: None)
  Receive Date: 20100917
  Receipt Date: 20100910
  Transmission Date: 20110219
  Serious: Yes (Other)
  Sender: FDA-Public Use
  Company Number: US-BIOGENIDEC-2010BI031810

PATIENT
  Age: 51 Year
  Sex: Male

DRUGS (2)
  1. AVONEX [Suspect]
     Indication: MULTIPLE SCLEROSIS
     Route: 030
     Dates: start: 19970301
  2. ACETAMINOPHEN [Concomitant]
     Route: 042

REACTIONS (8)
  - ABASIA [None]
  - CARDIAC FAILURE CONGESTIVE [None]
  - DRUG HYPERSENSITIVITY [None]
  - HEPATIC ENZYME INCREASED [None]
  - OPTIC NEURITIS [None]
  - OSTEOPENIA [None]
  - PANCREATIC DISORDER [None]
  - WHITE BLOOD CELL COUNT INCREASED [None]
